FAERS Safety Report 4831255-7 (Version None)
Quarter: 2005Q4

REPORT INFORMATION
  Report Type: 
  Country: None (occurrence: None)
  Receive Date: 20051116
  Receipt Date: 20051116
  Transmission Date: 20060501
  Serious: Yes (Death)
  Sender: FDA-Public Use
  Company Number: None

PATIENT
  Age: 24 Year
  Sex: Female
  Weight: 52.1637 kg

DRUGS (2)
  1. GEODON [Suspect]
     Indication: BIPOLAR DISORDER
     Dosage: PLEASE SEE ITEM B5
     Dates: start: 20050201, end: 20050315
  2. LEXAPRO [Concomitant]

REACTIONS (1)
  - COMPLETED SUICIDE [None]
